FAERS Safety Report 6522993-9 (Version None)
Quarter: 2009Q4

REPORT INFORMATION
  Report Type: 
  Country: None (occurrence: None)
  Receive Date: 20091222
  Receipt Date: 20091208
  Transmission Date: 20100525
  Serious: Yes (Hospitalization)
  Sender: FDA-Public Use
  Company Number: 2009AL007664

PATIENT
  Age: 78 Year
  Sex: Female

DRUGS (3)
  1. DIAZEPAM [Suspect]
     Dosage: 20 MG; QD;
  2. VENLAFAXINE HCL [Suspect]
     Dosage: 300 MG; QD;
  3. TRAZODONE HCL [Concomitant]

REACTIONS (11)
  - AGGRESSION [None]
  - ALEXIA [None]
  - ANXIETY [None]
  - APATHY [None]
  - DEPRESSION [None]
  - DRUG ABUSE [None]
  - DYSARTHRIA [None]
  - HEMISENSORY NEGLECT [None]
  - IMPAIRED SELF-CARE [None]
  - MARCHIAFAVA-BIGNAMI DISEASE [None]
  - READING DISORDER [None]
